FAERS Safety Report 24591811 (Version 1)
Quarter: 2024Q4

REPORT INFORMATION
  Report Type: Spontaneous
  Country: AU (occurrence: None)
  Receive Date: 20241108
  Receipt Date: 20241108
  Transmission Date: 20250114
  Serious: Yes (Other)
  Sender: MDD OPERATIONS
  Company Number: AU-MDD US Operations-MDD202411-004153

PATIENT
  Age: 54 Year
  Sex: Male

DRUGS (2)
  1. APOMORPHINE HYDROCHLORIDE [Suspect]
     Active Substance: APOMORPHINE HYDROCHLORIDE
     Indication: Product used for unknown indication
     Dosage: NOT PROVIDED
     Route: 058
  2. BENSERAZIDE HYDROCHLORIDE\LEVODOPA [Concomitant]
     Active Substance: BENSERAZIDE HYDROCHLORIDE\LEVODOPA
     Dosage: NOT PROVIDED

REACTIONS (5)
  - Dystonia [Unknown]
  - Condition aggravated [Unknown]
  - Gait inability [Unknown]
  - Dyskinesia [Unknown]
  - Intentional product use issue [Unknown]
